FAERS Safety Report 6427510-X (Version None)
Quarter: 2009Q4

REPORT INFORMATION
  Report Type: 
  Country: None (occurrence: None)
  Receive Date: 20091104
  Receipt Date: 20091027
  Transmission Date: 20100525
  Serious: Yes (Hospitalization)
  Sender: FDA-Public Use
  Company Number: PHHO2009FR12653

PATIENT
  Sex: Female

DRUGS (1)
  1. RAD 666 RAD+TAB [Suspect]
     Indication: ENDOMETRIAL CANCER METASTATIC
     Dosage: 10 MG/DAY
     Route: 048
     Dates: start: 20090721, end: 20091008

REACTIONS (5)
  - ANAEMIA [None]
  - ASCITES [None]
  - CONCOMITANT DISEASE PROGRESSION [None]
  - ELECTROCARDIOGRAM ST SEGMENT DEPRESSION [None]
  - GENERAL PHYSICAL HEALTH DETERIORATION [None]
